FAERS Safety Report 14777246 (Version 1)
Quarter: 2018Q2

REPORT INFORMATION
  Report Type: Spontaneous
  Country: FR (occurrence: FR)
  Receive Date: 20180419
  Receipt Date: 20180419
  Transmission Date: 20180711
  Serious: Yes (Hospitalization)
  Sender: FDA-Public Use
  Company Number: FR-ROCHE-2110015

PATIENT
  Age: 65 Year
  Sex: Male
  Weight: 52.45 kg

DRUGS (13)
  1. LOVENOX [Concomitant]
     Active Substance: ENOXAPARIN SODIUM
     Route: 065
  2. MELATONINE [Concomitant]
     Active Substance: MELATONIN
     Route: 065
  3. CLOZAPINE. [Suspect]
     Active Substance: CLOZAPINE
     Indication: PSYCHOTIC DISORDER
     Route: 048
     Dates: end: 20180214
  4. TEMESTA (FRANCE) [Suspect]
     Active Substance: LORAZEPAM
     Indication: DEPRESSION
     Route: 048
     Dates: start: 201712, end: 20180213
  5. CLOMIPRAMINE [Suspect]
     Active Substance: CLOMIPRAMINE
     Indication: DEPRESSION
     Route: 048
     Dates: start: 201712, end: 20180214
  6. MODOPAR [Concomitant]
     Active Substance: BENSERAZIDE HYDROCHLORIDE\LEVODOPA
     Dosage: (100 MG/25 MG),
     Route: 065
  7. MANTADIX [Concomitant]
     Active Substance: AMANTADINE HYDROCHLORIDE
     Route: 065
  8. CLOMIPRAMINE [Concomitant]
     Active Substance: CLOMIPRAMINE
     Route: 065
  9. COVERSYL [Concomitant]
     Active Substance: PERINDOPRIL
     Route: 065
  10. NEUPRO [Concomitant]
     Active Substance: ROTIGOTINE
     Dosage: 8 MG/24 H
     Route: 065
  11. VALIUM [Suspect]
     Active Substance: DIAZEPAM
     Indication: DEPRESSION
     Route: 048
     Dates: start: 201712, end: 20180212
  12. NICOPATCH [Concomitant]
     Active Substance: NICOTINE
     Dosage: 21 MG/24H
     Route: 065
  13. AZILECT [Concomitant]
     Active Substance: RASAGILINE MESYLATE
     Route: 065

REACTIONS (1)
  - Fall [Unknown]

NARRATIVE: CASE EVENT DATE: 20180210
